FAERS Safety Report 12317790 (Version 1)
Quarter: 2016Q2

REPORT INFORMATION
  Report Type: Spontaneous
  Country: CH (occurrence: CH)
  Receive Date: 20160429
  Receipt Date: 20160429
  Transmission Date: 20160815
  Serious: Yes (Hospitalization, Other)
  Sender: FDA-Public Use
  Company Number: CH-PFIZER INC-2016236487

PATIENT
  Age: 95 Year
  Sex: Female
  Weight: 75 kg

DRUGS (12)
  1. KLACID /00984601/ [Interacting]
     Active Substance: CLARITHROMYCIN
     Indication: PNEUMONIA LEGIONELLA
     Dosage: 500 MG, BID
     Route: 048
     Dates: start: 20160125, end: 20160126
  2. ZYLORIC [Concomitant]
     Active Substance: ALLOPURINOL
     Dosage: 100 MG, 1X/DAY
     Route: 048
     Dates: end: 20160405
  3. ELIQUIS [Suspect]
     Active Substance: APIXABAN
     Indication: CEREBROVASCULAR ACCIDENT PROPHYLAXIS
     Dosage: 5 MG, BID
     Route: 048
     Dates: start: 201511, end: 20160126
  4. TORASEMIDE [Concomitant]
     Active Substance: TORSEMIDE
     Route: 048
     Dates: start: 20160130
  5. FOLIC ACID. [Concomitant]
     Active Substance: FOLIC ACID
     Route: 048
     Dates: start: 20160126
  6. ATORVASTATIN CALCIUM. [Interacting]
     Active Substance: ATORVASTATIN CALCIUM
     Indication: TRANSIENT ISCHAEMIC ATTACK
     Dosage: 80 MG, 1X/DAY
     Route: 048
     Dates: start: 201511
  7. CLEXANE [Interacting]
     Active Substance: ENOXAPARIN SODIUM
     Indication: TRANSIENT ISCHAEMIC ATTACK
     Dosage: 80 MG, 2X/DAY
     Route: 058
     Dates: start: 20160201, end: 20160308
  8. VI-DE 3 [Concomitant]
     Active Substance: CHOLECALCIFEROL
     Dosage: 800 IU, 1X/DAY
     Route: 065
  9. SINTROM [Interacting]
     Active Substance: ACENOCOUMAROL
     Indication: TRANSIENT ISCHAEMIC ATTACK
     Route: 048
     Dates: start: 20160205, end: 20160212
  10. AUGMENTIN [Concomitant]
     Active Substance: AMOXICILLIN\CLAVULANATE POTASSIUM
     Dosage: 1.2 G, 3X/DAY
     Route: 041
     Dates: start: 20160125, end: 20160130
  11. LASIX [Concomitant]
     Active Substance: FUROSEMIDE
     Indication: CARDIAC FAILURE
     Dosage: 10 MG, 3X/DAY
     Route: 048
     Dates: start: 20160125, end: 20160129
  12. LYRICA [Concomitant]
     Active Substance: PREGABALIN
     Indication: POST HERPETIC NEURALGIA
     Dosage: 75 MG, 2X/DAY
     Route: 048

REACTIONS (4)
  - Haematuria [Recovered/Resolved]
  - Drug interaction [Unknown]
  - Catheter site haemorrhage [Recovered/Resolved]
  - Muscle haemorrhage [Recovered/Resolved]

NARRATIVE: CASE EVENT DATE: 20160126
